FAERS Safety Report 6668923-0 (Version None)
Quarter: 2010Q2

REPORT INFORMATION
  Report Type: 
  Country: None (occurrence: None)
  Receive Date: 20100406
  Receipt Date: 20100329
  Transmission Date: 20101027
  Serious: Yes (Death)
  Sender: FDA-Public Use
  Company Number: BG-SANOFI-AVENTIS-2010SA016416

PATIENT
  Age: 69 Year
  Sex: Male
  Weight: 107 kg

DRUGS (10)
  1. BLINDED THERAPY [Suspect]
     Indication: NON-SMALL CELL LUNG CANCER
     Route: 042
     Dates: start: 20091113, end: 20091113
  2. BLINDED THERAPY [Suspect]
     Route: 042
     Dates: start: 20100226, end: 20100226
  3. DOCETAXEL [Suspect]
     Indication: NON-SMALL CELL LUNG CANCER
     Route: 042
     Dates: start: 20091113, end: 20091113
  4. DOCETAXEL [Suspect]
     Route: 042
     Dates: start: 20100226, end: 20100226
  5. HYDROCHLOROTHIAZIDE/LOSARTAN POTASSIUM [Concomitant]
     Dates: start: 20091016
  6. BISOGAMMA [Concomitant]
     Dates: start: 20091016
  7. ISOSORBIDE MONONITRATE [Concomitant]
     Dates: start: 20091016
  8. ATORVASTATIN [Concomitant]
     Dates: start: 20091016
  9. PROPAFENONE HCL [Concomitant]
     Dates: start: 20091016
  10. CORTICOSTEROID NOS [Concomitant]

REACTIONS (1)
  - PULMONARY EMBOLISM [None]
